FAERS Safety Report 10313901 (Version 1)
Quarter: 2014Q3

REPORT INFORMATION
  Report Type: Report from Study
  Country: CA (occurrence: CA)
  Receive Date: 20140718
  Receipt Date: 20140718
  Transmission Date: 20150326
  Serious: Yes (Other)
  Sender: FDA-Public Use
  Company Number: CA-JNJFOC-20140709458

PATIENT
  Age: 51 Year
  Sex: Male
  Weight: 100.3 kg

DRUGS (1)
  1. REMICADE [Suspect]
     Active Substance: INFLIXIMAB
     Indication: COLITIS ULCERATIVE
     Route: 042
     Dates: start: 20060322

REACTIONS (1)
  - Chronic lymphocytic leukaemia stage 0 [Unknown]

NARRATIVE: CASE EVENT DATE: 201406
